FAERS Safety Report 5637309-X (Version None)
Quarter: 2008Q1

REPORT INFORMATION
  Report Type: 
  Country: None (occurrence: None)
  Receive Date: 20080225
  Receipt Date: 20080213
  Transmission Date: 20080703
  Serious: Yes (Other)
  Sender: FDA-Public Use
  Company Number: CA-PURDUE-CAN_2008_0000483

PATIENT
  Sex: Male
  Weight: 125 kg

DRUGS (2)
  1. OXYCONTIN [Suspect]
     Indication: PAIN
     Dosage: 80 MG, BID
     Route: 048
     Dates: start: 20030101
  2. REVIA [Suspect]
     Route: 048
     Dates: start: 20030101, end: 20030101

REACTIONS (20)
  - ABDOMINAL PAIN [None]
  - AMNESIA [None]
  - ANXIETY [None]
  - CEREBROVASCULAR ACCIDENT [None]
  - CHILLS [None]
  - CONFUSIONAL STATE [None]
  - DEHYDRATION [None]
  - DIARRHOEA [None]
  - DRUG INTERACTION [None]
  - DYSARTHRIA [None]
  - DYSPNOEA [None]
  - GAIT DISTURBANCE [None]
  - HALLUCINATION [None]
  - HYPERHIDROSIS [None]
  - HYPERSOMNIA [None]
  - MEDICATION ERROR [None]
  - PALPITATIONS [None]
  - PANIC ATTACK [None]
  - VOMITING [None]
  - WITHDRAWAL SYNDROME [None]
